FAERS Safety Report 17196390 (Version 2)
Quarter: 2019Q4

REPORT INFORMATION
  Report Type: Report from Study
  Country: MX (occurrence: MX)
  Receive Date: 20191224
  Receipt Date: 20191227
  Transmission Date: 20200122
  Serious: Yes (Death)
  Sender: FDA-Public Use
  Company Number: NVSC2019MX078040

PATIENT
  Age: 69 Year
  Sex: Male
  Weight: 48 kg

DRUGS (1)
  1. VOTRIENT [Suspect]
     Active Substance: PAZOPANIB HYDROCHLORIDE
     Indication: RENAL CANCER
     Dosage: 2 OT, QD
     Route: 048
     Dates: start: 20191116

REACTIONS (1)
  - Death [Fatal]

NARRATIVE: CASE EVENT DATE: 20191217
